FAERS Safety Report 5483955-6 (Version None)
Quarter: 2007Q4

REPORT INFORMATION
  Report Type: 
  Country: None (occurrence: None)
  Receive Date: 20071012
  Receipt Date: 20071004
  Transmission Date: 20080405
  Serious: Yes (Death, Other)
  Sender: FDA-Public Use
  Company Number: JP-MERCK-0708USA02135

PATIENT
  Age: 96 Year
  Sex: Female
  Weight: 35 kg

DRUGS (13)
  1. STROMECTOL [Suspect]
     Indication: ACARODERMATITIS
     Route: 048
     Dates: start: 20070705, end: 20070705
  2. STROMECTOL [Suspect]
     Route: 048
     Dates: start: 20070712, end: 20070712
  3. STROMECTOL [Suspect]
     Route: 048
     Dates: start: 20070719, end: 20070719
  4. STROMECTOL [Suspect]
     Route: 048
     Dates: start: 20070306, end: 20070306
  5. STROMECTOL [Suspect]
     Route: 048
     Dates: start: 20070313, end: 20070313
  6. GAMMA BENZENE HEXACHLORIDE [Suspect]
     Indication: ACARODERMATITIS
     Route: 061
     Dates: start: 20070714, end: 20070714
  7. GAMMA BENZENE HEXACHLORIDE [Suspect]
     Route: 061
     Dates: start: 20070707, end: 20070707
  8. GAMMA BENZENE HEXACHLORIDE [Suspect]
     Route: 061
     Dates: start: 20070306, end: 20070306
  9. URSO 250 [Concomitant]
     Indication: CHOLECYSTITIS
     Route: 048
     Dates: start: 20061108, end: 20070721
  10. CAPTOPRIL [Concomitant]
     Indication: HYPERTENSION
     Route: 048
     Dates: start: 20061108, end: 20070721
  11. PANTOSIN [Concomitant]
     Indication: CONSTIPATION
     Route: 048
     Dates: start: 20070201, end: 20070720
  12. MAGNESIUM OXIDE [Concomitant]
     Indication: CONSTIPATION
     Route: 048
     Dates: start: 20070201, end: 20070720
  13. EURAX [Concomitant]
     Indication: ACARODERMATITIS
     Route: 061

REACTIONS (3)
  - LIVER DISORDER [None]
  - PYREXIA [None]
  - SEPTIC SHOCK [None]
